FAERS Safety Report 7803151-4 (Version None)
Quarter: 2011Q4

REPORT INFORMATION
  Report Type: 
  Country: None (occurrence: None)
  Receive Date: 20111007
  Receipt Date: 20110114
  Transmission Date: 20120403
  Serious: No
  Sender: FDA-Public Use
  Company Number: US-ABBOTT-10P-163-0655893-00

PATIENT
  Age: 41 Year
  Sex: Female

DRUGS (4)
  1. KALETRA [Suspect]
     Indication: PRODUCT USED FOR UNKNOWN INDICATION
     Route: 048
     Dates: start: 20100401, end: 20100428
  2. ZIDOVUDINE [Suspect]
     Indication: PRODUCT USED FOR UNKNOWN INDICATION
     Route: 042
     Dates: start: 20100905, end: 20100906
  3. KALETRA [Suspect]
     Route: 048
     Dates: start: 20100409
  4. TENOFOVIR DISOPROXIL FUMARATE + EMTRICITABINE (TRUVADA, TVD) [Suspect]
     Indication: PRODUCT USED FOR UNKNOWN INDICATION
     Route: 048
     Dates: start: 20100401

REACTIONS (2)
  - GESTATIONAL DIABETES [None]
  - LIVE BIRTH [None]
